FAERS Safety Report 14317507 (Version 1)
Quarter: 2017Q4

REPORT INFORMATION
  Report Type: Spontaneous
  Country: FR (occurrence: FR)
  Receive Date: 20171222
  Receipt Date: 20171222
  Transmission Date: 20180321
  Serious: Yes (Hospitalization)
  Sender: FDA-Public Use
  Company Number: FR-JNJFOC-20171219231

PATIENT
  Age: 14 Year
  Sex: Female
  Weight: 45 kg

DRUGS (1)
  1. RISPERIDONE. [Suspect]
     Active Substance: RISPERIDONE
     Indication: SUICIDE ATTEMPT
     Route: 048
     Dates: start: 20171018, end: 20171018

REACTIONS (4)
  - Encephalopathy [Recovered/Resolved]
  - Off label use [Unknown]
  - Extrapyramidal disorder [Recovered/Resolved]
  - Incorrect dose administered [Unknown]

NARRATIVE: CASE EVENT DATE: 20171018
